FAERS Safety Report 8778720 (Version 3)
Quarter: 2012Q4

REPORT INFORMATION
  Report Type: 
  Country: US (occurrence: US)
  Receive Date: 20120912
  Receipt Date: 20121023
  Transmission Date: 20130627
  Serious: No
  Sender: FDA-Public Use
  Company Number: US-PFIZER INC-2012221280

PATIENT
  Age: 58 Year
  Sex: Male

DRUGS (3)
  1. INLYTA [Suspect]
     Indication: RENAL CANCER
     Dosage: 5 mg
     Dates: start: 20120817
  2. INLYTA [Suspect]
     Dosage: 1 mg
     Dates: start: 20120817
  3. INLYTA [Suspect]
     Dosage: 7 mg, 2x/day

REACTIONS (2)
  - Disease progression [Unknown]
  - Renal cancer [Unknown]
